FAERS Safety Report 8887682 (Version 1)
Quarter: 2012Q4

REPORT INFORMATION
  Report Type: 
  Country: US (occurrence: US)
  Receive Date: 20121106
  Receipt Date: 20121106
  Transmission Date: 20130627
  Serious: Yes (Hospitalization, Other)
  Sender: FDA-Public Use
  Company Number: US-TEVA-367738USA

PATIENT
  Age: 48 Year
  Sex: Male

DRUGS (3)
  1. CLOZAPINE [Suspect]
     Indication: SCHIZOAFFECTIVE DISORDER
     Route: 048
     Dates: end: 20121020
  2. RISPERDAL [Suspect]
  3. RISPERDAL CONSTA [Suspect]

REACTIONS (14)
  - Drooling [Recovering/Resolving]
  - Constipation [Recovering/Resolving]
  - Convulsion [Recovering/Resolving]
  - Toxicity to various agents [Recovering/Resolving]
  - Lethargy [Recovering/Resolving]
  - Dysarthria [Recovering/Resolving]
  - Gait disturbance [Recovering/Resolving]
  - Gait disturbance [Recovering/Resolving]
  - Myoclonus [Recovering/Resolving]
  - Mania [Recovering/Resolving]
  - Anxiety [Recovering/Resolving]
  - Sexually inappropriate behaviour [Recovering/Resolving]
  - Anger [Recovering/Resolving]
  - Energy increased [Recovering/Resolving]
